FAERS Safety Report 6072194-6 (Version None)
Quarter: 2009Q1

REPORT INFORMATION
  Report Type: 
  Country: None (occurrence: None)
  Receive Date: 20090206
  Receipt Date: 20090206
  Transmission Date: 20090719
  Serious: Yes (Other)
  Sender: FDA-Public Use
  Company Number: None

PATIENT
  Sex: Female
  Weight: 91.36 kg

DRUGS (1)
  1. LISINOPRIL [Suspect]
     Dosage: ORAL
     Dates: start: 20090112, end: 20090205

REACTIONS (1)
  - COUGH [None]
